FAERS Safety Report 9661560 (Version 2)
Quarter: 2013Q4

REPORT INFORMATION
  Report Type: Spontaneous
  Country: US (occurrence: US)
  Receive Date: 20131031
  Receipt Date: 20131031
  Transmission Date: 20140711
  Serious: Yes (Other)
  Sender: FDA-Public Use
  Company Number: US-NAPPMUNDI-USA-2010-0055284

PATIENT
  Sex: Female

DRUGS (1)
  1. OXYCONTIN (NDA 22-272) [Suspect]
     Indication: PAIN
     Dosage: 160 MG, UNK
     Route: 048
     Dates: start: 20101003

REACTIONS (11)
  - Drug dependence [Unknown]
  - Throat irritation [Unknown]
  - Pain [Unknown]
  - Dyspepsia [Unknown]
  - Malaise [Unknown]
  - General physical health deterioration [Unknown]
  - Intentional drug misuse [Unknown]
  - Drug effect decreased [Unknown]
  - Product size issue [Unknown]
  - Product quality issue [Unknown]
  - Crying [Unknown]
